FAERS Safety Report 18141915 (Version 1)
Quarter: 2020Q3

REPORT INFORMATION
  Report Type: Spontaneous
  Country: US (occurrence: US)
  Receive Date: 20200812
  Receipt Date: 20200812
  Transmission Date: 20201103
  Serious: No
  Sender: FDA-Public Use
  Company Number: US-ELI_LILLY_AND_COMPANY-US202007006133

PATIENT
  Sex: Male

DRUGS (2)
  1. EMGALITY [Suspect]
     Active Substance: GALCANEZUMAB-GNLM
     Indication: CLUSTER HEADACHE
     Dosage: 300 MG, SINGLE
     Route: 065
     Dates: start: 20200630, end: 20200630
  2. EMGALITY [Suspect]
     Active Substance: GALCANEZUMAB-GNLM
     Dosage: 01 DOSAGE FORM, UNKNOWN
     Route: 065

REACTIONS (3)
  - Headache [Unknown]
  - Eye pain [Unknown]
  - Cluster headache [Recovered/Resolved]
